FAERS Safety Report 18188156 (Version 1)
Quarter: 2020Q3

REPORT INFORMATION
  Report Type: Spontaneous
  Country: JP (occurrence: JP)
  Receive Date: 20200824
  Receipt Date: 20200824
  Transmission Date: 20201103
  Serious: Yes (Life-Threatening, Hospitalization, Other)
  Sender: FDA-Public Use
  Company Number: JP-009507513-2008JPN011580

PATIENT
  Age: 49 Year
  Sex: Male
  Weight: 79 kg

DRUGS (11)
  1. LAMICTAL [Suspect]
     Active Substance: LAMOTRIGINE
     Dosage: 25 MG, Q12H
     Route: 048
     Dates: start: 20141219, end: 20150122
  2. METGLUCO [Concomitant]
     Active Substance: METFORMIN HYDROCHLORIDE
     Dosage: 250 MG, Q12H
     Route: 065
     Dates: start: 201412, end: 20150122
  3. TRIAZOLAM. [Concomitant]
     Active Substance: TRIAZOLAM
     Dosage: 0.5 MG, EVERYDAY
     Route: 065
     Dates: start: 201410, end: 20150122
  4. OLOPATADINE HYDROCHLORIDE. [Concomitant]
     Active Substance: OLOPATADINE HYDROCHLORIDE
     Dosage: UNK
     Route: 065
  5. LAMICTAL [Suspect]
     Active Substance: LAMOTRIGINE
     Indication: BIPOLAR DISORDER
     Dosage: 25 MG, EVERYDAY
     Route: 048
     Dates: start: 20141205, end: 20141218
  6. SENIRAN [Concomitant]
     Active Substance: BROMAZEPAM
     Dosage: 2 MG, Q12H
     Route: 065
     Dates: start: 201409, end: 20150122
  7. CONTOMIN [Concomitant]
     Active Substance: CHLORPROMAZINE
     Dosage: 12.5 MG, Q12H
     Route: 065
     Dates: start: 201409, end: 20150122
  8. CALONAL [Concomitant]
     Active Substance: ACETAMINOPHEN
     Dosage: UNK
     Route: 065
  9. TRANEXAMIC ACID. [Concomitant]
     Active Substance: TRANEXAMIC ACID
     Dosage: UNK
     Route: 065
  10. GLACTIV [Suspect]
     Active Substance: SITAGLIPTIN
     Indication: DIABETES MELLITUS
     Dosage: 50 MG, EVERYDAY
     Route: 048
     Dates: start: 201412, end: 20150122
  11. LOXONIN [Suspect]
     Active Substance: LOXOPROFEN SODIUM
     Indication: RHINITIS
     Dosage: 60 MG, EVERYDAY
     Route: 048
     Dates: start: 20150101, end: 20150103

REACTIONS (17)
  - Drug reaction with eosinophilia and systemic symptoms [Recovering/Resolving]
  - Epidermal necrosis [Unknown]
  - Skin degenerative disorder [Unknown]
  - Dermatitis exfoliative generalised [Unknown]
  - Skin erosion [Unknown]
  - Lymphadenopathy [Unknown]
  - Eye discharge [Unknown]
  - Oral mucosa erosion [Unknown]
  - Lip erosion [Unknown]
  - Scab [Unknown]
  - Mucosal disorder [Unknown]
  - Pyrexia [Unknown]
  - Lymphocytic infiltration [Unknown]
  - Stevens-Johnson syndrome [Recovering/Resolving]
  - Staphylococcal sepsis [Recovering/Resolving]
  - Ocular hyperaemia [Unknown]
  - Erythema of eyelid [Unknown]

NARRATIVE: CASE EVENT DATE: 20150110
